FAERS Safety Report 15951238 (Version 11)
Quarter: 2020Q1

REPORT INFORMATION
  Report Type: Report from Study
  Country: US (occurrence: US)
  Receive Date: 20190212
  Receipt Date: 20200325
  Transmission Date: 20200409
  Serious: Yes (Other)
  Sender: FDA-Public Use
  Company Number: US-PFIZER INC-2018459622

PATIENT
  Age: 77 Year
  Sex: Female

DRUGS (6)
  1. IBRANCE [Suspect]
     Active Substance: PALBOCICLIB
     Indication: BREAST CANCER FEMALE
     Dosage: 100 MG, CYCLIC (DAILY FOR 21 DAYS AND OFF 7 DAYS)
     Route: 048
     Dates: start: 20181022, end: 2018
  2. AROMASIN [Suspect]
     Active Substance: EXEMESTANE
     Indication: BREAST CANCER FEMALE
     Dosage: UNK, DAILY
     Dates: start: 20181119
  3. IBRANCE [Suspect]
     Active Substance: PALBOCICLIB
     Dosage: 75 MG, CYCLIC (DAILY FOR 21 DAYS AND OFF 7 DAYS)
     Route: 048
     Dates: start: 20181119, end: 2018
  4. IBRANCE [Suspect]
     Active Substance: PALBOCICLIB
     Dosage: 75 MG, CYCLIC (DAILY FOR 21 DAYS AND OFF 7 DAYS)
     Route: 048
     Dates: start: 20181223, end: 20190514
  5. IBRANCE [Suspect]
     Active Substance: PALBOCICLIB
     Dosage: 75 MG, CYCLIC (DAILY FOR 21 DAYS AND OFF 7 DAYS)
     Route: 048
     Dates: start: 20191027
  6. PROLIA [Concomitant]
     Active Substance: DENOSUMAB
     Dosage: UNK

REACTIONS (26)
  - Dyspnoea [Recovering/Resolving]
  - Haemorrhoids [Unknown]
  - Intentional product misuse [Unknown]
  - Diverticulitis [Unknown]
  - Headache [Recovering/Resolving]
  - Lacrimation increased [Unknown]
  - Eye pruritus [Unknown]
  - Large intestine polyp [Unknown]
  - Peripheral swelling [Unknown]
  - Vitamin D decreased [Recovering/Resolving]
  - Blood phosphorus decreased [Unknown]
  - Facial pain [Unknown]
  - Arthralgia [Recovering/Resolving]
  - Stomatitis [Recovering/Resolving]
  - Pain in extremity [Unknown]
  - Diarrhoea [Unknown]
  - Pain [Recovering/Resolving]
  - Pain in jaw [Unknown]
  - Fatigue [Not Recovered/Not Resolved]
  - Back pain [Recovering/Resolving]
  - Visual impairment [Unknown]
  - Blood magnesium decreased [Recovering/Resolving]
  - Blood potassium decreased [Recovering/Resolving]
  - Joint swelling [Recovering/Resolving]
  - Optic nerve disorder [Unknown]
  - Decreased appetite [Recovering/Resolving]

NARRATIVE: CASE EVENT DATE: 2018
